FAERS Safety Report 10075850 (Version 2)
Quarter: 2014Q2

REPORT INFORMATION
  Report Type: Spontaneous
  Country: AU (occurrence: AU)
  Receive Date: 20140414
  Receipt Date: 20140415
  Transmission Date: 20141212
  Serious: Yes (Hospitalization)
  Sender: FDA-Public Use
  Company Number: AU-PFIZER INC-2014099495

PATIENT
  Age: 73 Year
  Sex: Female

DRUGS (10)
  1. ALENDRONATE PFIZER [Suspect]
     Dosage: 70 MG, WEEKLY
  2. ESOMEPRAZOLE MAGNESIUM [Suspect]
     Dosage: UNK
  3. FLECAINIDE [Concomitant]
  4. CANDESARTAN [Concomitant]
  5. DOTHIEPIN [Concomitant]
  6. LERCANIDIPINE [Concomitant]
  7. FOLIC ACID [Concomitant]
  8. FRUSEMIDE [Concomitant]
  9. WARFARIN [Concomitant]
  10. CALCIUM WITH VITAMIN D [Concomitant]
     Indication: RADIUS FRACTURE

REACTIONS (1)
  - Femur fracture [Unknown]
